FAERS Safety Report 7944076-3 (Version None)
Quarter: 2011Q4

REPORT INFORMATION
  Report Type: 
  Country: None (occurrence: None)
  Receive Date: 20111128
  Receipt Date: 20111118
  Transmission Date: 20120403
  Serious: Yes (Hospitalization)
  Sender: FDA-Public Use
  Company Number: IT-ASTRAZENECA-2011SE64292

PATIENT
  Age: 21095 Day
  Sex: Female

DRUGS (7)
  1. LUCEN [Suspect]
     Indication: MULTIPLE DRUG OVERDOSE INTENTIONAL
     Dosage: 80 MG ONCE/SINGLE ADMINISTRATION
     Route: 048
     Dates: start: 20110415, end: 20110415
  2. PROPAFENONE HCL [Suspect]
     Indication: VENTRICULAR EXTRASYSTOLES
  3. PROPAFENONE HCL [Suspect]
     Dosage: 1.05 G ONCE/SINGLE ADMINISTRATION
     Route: 048
     Dates: start: 20110415, end: 20110415
  4. PROPAFENONE HCL [Suspect]
     Indication: MULTIPLE DRUG OVERDOSE INTENTIONAL
  5. XANAX [Suspect]
     Indication: MULTIPLE DRUG OVERDOSE INTENTIONAL
     Dosage: 5 MG ONCE/SINGLE ADMINISTRATION
     Route: 048
     Dates: start: 20110415, end: 20110415
  6. PERIDON [Suspect]
     Indication: MULTIPLE DRUG OVERDOSE INTENTIONAL
     Dosage: 70 MG ONCE/SINGLE ADMINISTRATION
     Route: 048
     Dates: start: 20110415, end: 20110415
  7. PROPAFENONE HCL [Suspect]
     Dosage: 1.05 G ONCE/SINGLE ADMINISTRATION
     Route: 048
     Dates: start: 20110415, end: 20110415

REACTIONS (1)
  - SOPOR [None]
